FAERS Safety Report 13163524 (Version 1)
Quarter: 2017Q1

REPORT INFORMATION
  Report Type: Spontaneous
  Country: DE (occurrence: DE)
  Receive Date: 20170130
  Receipt Date: 20170130
  Transmission Date: 20170428
  Serious: Yes (Hospitalization, Disabling)
  Sender: FDA-Public Use
  Company Number: DE-ASTRAZENECA-2017SE10060

PATIENT
  Age: 54 Year
  Sex: Female

DRUGS (19)
  1. QUETIAPINE. [Interacting]
     Active Substance: QUETIAPINE
     Dosage: 50 MG IN ADDITION UNKNOWN
     Route: 048
  2. VALPROAT [Interacting]
     Active Substance: VALPROATE SODIUM
     Route: 065
     Dates: start: 2012
  3. TRAZODON [Concomitant]
     Active Substance: TRAZODONE HYDROCHLORIDE
     Route: 065
     Dates: start: 2007
  4. CHLORPROTHIXEN [Concomitant]
     Active Substance: CHLORPROTHIXENE HYDROCHLORIDE
     Route: 065
     Dates: start: 2007
  5. MIRTAZAPIN [Concomitant]
     Active Substance: MIRTAZAPINE
     Route: 065
     Dates: start: 2012
  6. VALPROAT [Interacting]
     Active Substance: VALPROATE SODIUM
     Dosage: 1050.0MG UNKNOWN
     Route: 065
     Dates: start: 2013
  7. PREGABALIN. [Concomitant]
     Active Substance: PREGABALIN
     Dosage: 300.0MG UNKNOWN
     Route: 065
  8. SERTRALINE [Concomitant]
     Active Substance: SERTRALINE HYDROCHLORIDE
     Dosage: 50.0MG UNKNOWN
     Route: 065
  9. QUETIAPINE. [Interacting]
     Active Substance: QUETIAPINE
     Dosage: 300.0MG UNKNOWN
     Route: 048
  10. VALPROAT [Interacting]
     Active Substance: VALPROATE SODIUM
     Dosage: 450.0MG UNKNOWN
     Route: 065
  11. ZOLPIDEM [Concomitant]
     Active Substance: ZOLPIDEM\ZOLPIDEM TARTRATE
     Route: 065
     Dates: start: 2007
  12. QUETIAPINE. [Suspect]
     Active Substance: QUETIAPINE
     Dosage: UP TO 400 MG
     Route: 048
     Dates: start: 2012
  13. QUETIAPINE. [Interacting]
     Active Substance: QUETIAPINE
     Dosage: 600.0MG UNKNOWN
     Route: 048
  14. SERTRALINE [Concomitant]
     Active Substance: SERTRALINE HYDROCHLORIDE
     Dosage: 25.0MG UNKNOWN
     Route: 065
  15. OLANZAPIN [Concomitant]
     Active Substance: OLANZAPINE
     Route: 065
     Dates: start: 2012
  16. VALPROAT [Interacting]
     Active Substance: VALPROATE SODIUM
     Dosage: 600.0MG UNKNOWN
     Route: 065
     Dates: start: 2014
  17. ZISPRASIDON [Concomitant]
     Route: 065
     Dates: start: 2007
  18. PREGABALIN. [Concomitant]
     Active Substance: PREGABALIN
     Dosage: 200.0MG UNKNOWN
     Route: 065
  19. ARIPIPRAZOL [Concomitant]
     Active Substance: ARIPIPRAZOLE
     Dosage: 5.0MG UNKNOWN
     Route: 065

REACTIONS (3)
  - Cognitive disorder [Recovered/Resolved]
  - Drug interaction [Unknown]
  - Extrapyramidal disorder [Recovered/Resolved]
